FAERS Safety Report 5445808-9 (Version None)
Quarter: 2007Q3

REPORT INFORMATION
  Report Type: 
  Country: None (occurrence: None)
  Receive Date: 20070906
  Receipt Date: 20070827
  Transmission Date: 20080115
  Serious: Yes (Disabling)
  Sender: FDA-Public Use
  Company Number: DO-ABBOTT-07P-CLI-0415149-00

PATIENT
  Age: 62 Year
  Sex: Female

DRUGS (4)
  1. SYNTHROID [Suspect]
     Indication: THYROID NEOPLASM
     Route: 048
     Dates: start: 20070808, end: 20070817
  2. SYNTHROID [Suspect]
     Route: 048
     Dates: end: 20070825
  3. VERAPAMIL HYDROCHLORIDE [Concomitant]
     Indication: HYPERTENSION
     Route: 048
  4. TRIFLUSAL [Concomitant]
     Indication: ANTIPLATELET THERAPY
     Route: 048

REACTIONS (3)
  - DYSPEPSIA [None]
  - MYALGIA [None]
  - UNDERDOSE [None]
